FAERS Safety Report 8179628-1 (Version None)
Quarter: 2012Q1

REPORT INFORMATION
  Report Type: 
  Country: None (occurrence: None)
  Receive Date: 20120302
  Receipt Date: 20120227
  Transmission Date: 20120608
  Serious: Yes (Hospitalization)
  Sender: FDA-Public Use
  Company Number: DE-ABBOTT-12P-062-0896961-00

PATIENT
  Sex: Female
  Weight: 88 kg

DRUGS (3)
  1. PANTOPRAZOLE [Concomitant]
     Indication: PRODUCT USED FOR UNKNOWN INDICATION
     Dosage: 20 MG DAILY
     Route: 048
  2. HUMIRA [Suspect]
     Indication: RHEUMATOID ARTHRITIS
     Route: 058
     Dates: start: 20120103, end: 20120103
  3. LEVOTHYROXINE SODIUM [Concomitant]
     Indication: PRODUCT USED FOR UNKNOWN INDICATION
     Dosage: 100 MG DAILY

REACTIONS (11)
  - RASH GENERALISED [None]
  - FATIGUE [None]
  - JOINT SWELLING [None]
  - PRURITUS [None]
  - CHILLS [None]
  - LACTOSE INTOLERANCE [None]
  - HEADACHE [None]
  - PYREXIA [None]
  - LYMPHADENOPATHY [None]
  - INJECTION SITE REACTION [None]
  - OEDEMA PERIPHERAL [None]
